FAERS Safety Report 5936123-5 (Version None)
Quarter: 2008Q4

REPORT INFORMATION
  Report Type: 
  Country: None (occurrence: None)
  Receive Date: 20081030
  Receipt Date: 20081022
  Transmission Date: 20090506
  Serious: Yes (Hospitalization, Other)
  Sender: FDA-Public Use
  Company Number: JP-BAYER-200811678BYL

PATIENT
  Age: 72 Year
  Sex: Female
  Weight: 39 kg

DRUGS (32)
  1. NEXAVAR [Suspect]
     Indication: RENAL CELL CARCINOMA STAGE IV
     Dosage: TOTAL DAILY DOSE: 800 MG  UNIT DOSE: 200 MG
     Route: 048
     Dates: start: 20080617, end: 20080630
  2. NEXAVAR [Suspect]
     Dosage: TOTAL DAILY DOSE: 200 MG  UNIT DOSE: 200 MG
     Route: 048
     Dates: start: 20080820, end: 20080828
  3. NEXAVAR [Suspect]
     Dosage: UNIT DOSE: 200 MG
     Route: 048
     Dates: start: 20080811, end: 20080819
  4. NEXAVAR [Suspect]
     Dosage: TOTAL DAILY DOSE: 200 MG  UNIT DOSE: 200 MG
     Route: 048
     Dates: start: 20080717, end: 20080725
  5. MAGMITT [Concomitant]
     Dosage: TOTAL DAILY DOSE: 1980 MG  UNIT DOSE: 330 MG
     Route: 048
     Dates: start: 20080615, end: 20080701
  6. BIO-THREE [Concomitant]
     Route: 048
     Dates: start: 20080615, end: 20080701
  7. DAI-KENCHU-TO [Concomitant]
     Dosage: TOTAL DAILY DOSE: 7.5 G  UNIT DOSE: 2.5 G
     Route: 048
     Dates: start: 20080615, end: 20080701
  8. MECOBALAMIN [Concomitant]
     Dosage: TOTAL DAILY DOSE: 1500 ?G  UNIT DOSE: 500 ?G
     Route: 048
     Dates: start: 20080615, end: 20080701
  9. FAMOTIDINE [Concomitant]
     Dosage: TOTAL DAILY DOSE: 20 MG  UNIT DOSE: 10 MG
     Route: 048
     Dates: start: 20080615, end: 20080701
  10. ALLEGRA [Concomitant]
     Dosage: TOTAL DAILY DOSE: 120 MG  UNIT DOSE: 60 MG
     Route: 048
     Dates: start: 20080615, end: 20080701
  11. SENNARIDE [Concomitant]
     Route: 048
     Dates: start: 20080615, end: 20080701
  12. NAUZELIN [Concomitant]
     Dosage: TOTAL DAILY DOSE: 15 MG  UNIT DOSE: 5 MG
     Route: 048
     Dates: start: 20080615, end: 20080701
  13. AMOBAN [Concomitant]
     Indication: DRUG USE FOR UNKNOWN INDICATION
     Dosage: UNIT DOSE: 7.5 MG
     Route: 048
     Dates: start: 20080615, end: 20080714
  14. AMOBAN [Concomitant]
     Dosage: UNIT DOSE: 7.5 MG
     Route: 048
     Dates: start: 20080716, end: 20080725
  15. AMLODIN [Concomitant]
     Dosage: UNIT DOSE: 5 MG
     Route: 048
     Dates: start: 20080615, end: 20080725
  16. FENTANYL CITRATE [Concomitant]
     Indication: DRUG USE FOR UNKNOWN INDICATION
     Dosage: UNIT DOSE: 2.5 MG
     Route: 062
     Dates: start: 20080615, end: 20080615
  17. FENTANYL CITRATE [Concomitant]
     Dosage: UNIT DOSE: 2.5 MG
     Route: 062
     Dates: start: 20080630, end: 20080630
  18. FENTANYL CITRATE [Concomitant]
     Dosage: UNIT DOSE: 2.5 MG
     Route: 062
     Dates: start: 20080624, end: 20080624
  19. FENTANYL CITRATE [Concomitant]
     Dosage: UNIT DOSE: 2.5 MG
     Route: 062
     Dates: start: 20080627, end: 20080627
  20. FENTANYL CITRATE [Concomitant]
     Dosage: UNIT DOSE: 2.5 MG
     Route: 062
     Dates: start: 20080718, end: 20080718
  21. FENTANYL CITRATE [Concomitant]
     Dosage: UNIT DOSE: 2.5 MG
     Route: 062
     Dates: start: 20080621, end: 20080621
  22. FENTANYL CITRATE [Concomitant]
     Dosage: UNIT DOSE: 2.5 MG
     Route: 062
     Dates: start: 20080715, end: 20080715
  23. FENTANYL CITRATE [Concomitant]
     Dosage: UNIT DOSE: 2.5 MG
     Route: 062
     Dates: start: 20080721, end: 20080721
  24. FENTANYL CITRATE [Concomitant]
     Dosage: UNIT DOSE: 2.5 MG
     Route: 062
     Dates: start: 20080618, end: 20080618
  25. GARASONE [Concomitant]
     Dosage: UNIT DOSE: 10 G
     Route: 062
     Dates: start: 20080627, end: 20080627
  26. AZUNOL [Concomitant]
     Route: 062
     Dates: start: 20080627, end: 20080627
  27. ALLELOCK [Concomitant]
     Dosage: UNIT DOSE: 5 MG
     Route: 048
     Dates: start: 20080630, end: 20080630
  28. WHITE PETROLATUM [Concomitant]
     Dosage: TOTAL DAILY DOSE: 50 G
     Route: 062
     Dates: start: 20080630, end: 20080630
  29. MYSER [Concomitant]
     Dosage: TOTAL DAILY DOSE: 50 G  UNIT DOSE: 10 G
     Route: 062
     Dates: start: 20080630, end: 20080630
  30. KENEI G [Concomitant]
     Dosage: UNIT DOSE: 120 ML
     Route: 054
     Dates: start: 20080714, end: 20080714
  31. SOLDEM 3A [Concomitant]
     Dosage: TOTAL DAILY DOSE: 2000 ML  UNIT DOSE: 500 ML
     Route: 041
     Dates: start: 20080715, end: 20080715
  32. BLOPRESS [Concomitant]
     Dosage: TOTAL DAILY DOSE: 4 MG  UNIT DOSE: 4 MG
     Route: 048
     Dates: start: 20080811, end: 20080824

REACTIONS (6)
  - HEPATIC FUNCTION ABNORMAL [None]
  - PALMAR-PLANTAR ERYTHRODYSAESTHESIA SYNDROME [None]
  - PLATELET COUNT DECREASED [None]
  - RASH [None]
  - STOMATITIS [None]
  - WHITE BLOOD CELL COUNT DECREASED [None]
